FAERS Safety Report 7685969-4 (Version None)
Quarter: 2011Q3

REPORT INFORMATION
  Report Type: 
  Country: None (occurrence: None)
  Receive Date: 20110816
  Receipt Date: 20110812
  Transmission Date: 20111222
  Serious: Yes (Life-Threatening, Hospitalization)
  Sender: FDA-Public Use
  Company Number: FR-B.I. PHARMACEUTICALS,INC./RIDGEFIELD-2010-FF-01064FF

PATIENT
  Sex: Female
  Weight: 70 kg

DRUGS (5)
  1. XALATAN [Concomitant]
     Indication: GLAUCOMA
     Dosage: ONE DROP
     Route: 061
     Dates: start: 20101021
  2. PRADAXA [Suspect]
     Indication: HIP ARTHROPLASTY
     Dosage: 75 MG
     Route: 048
     Dates: start: 20101021, end: 20101021
  3. PRADAXA [Suspect]
     Dosage: 150 MG
     Route: 048
     Dates: start: 20101022, end: 20101023
  4. VASTAREL [Concomitant]
     Indication: POOR PERIPHERAL CIRCULATION
     Dosage: 40 MCG
     Route: 048
     Dates: start: 20101022
  5. ACETAMINOPHEN [Concomitant]
     Indication: PAIN
     Dosage: 2 G
     Route: 042
     Dates: start: 20101021, end: 20101022

REACTIONS (2)
  - DEEP VEIN THROMBOSIS [None]
  - PULMONARY EMBOLISM [None]
